FAERS Safety Report 6908055-7 (Version None)
Quarter: 2010Q3

REPORT INFORMATION
  Report Type: 
  Country: None (occurrence: None)
  Receive Date: 20100805
  Receipt Date: 20100730
  Transmission Date: 20110219
  Serious: Yes (Death, Life-Threatening)
  Sender: FDA-Public Use
  Company Number: FR-CELGENEUS-056-50794-10062588

PATIENT
  Sex: Female
  Weight: 52 kg

DRUGS (9)
  1. VIDAZA [Suspect]
     Route: 058
     Dates: start: 20100607, end: 20100611
  2. REVLIMID [Suspect]
     Route: 048
     Dates: start: 20100607, end: 20100617
  3. TEGRETOL [Concomitant]
     Indication: EPILEPSY
     Route: 048
     Dates: start: 19950101, end: 20100621
  4. PIASCLEDINE [Concomitant]
     Indication: PRODUCT USED FOR UNKNOWN INDICATION
     Route: 048
     Dates: start: 20100301, end: 20100621
  5. PIASCLEDINE [Concomitant]
     Route: 048
  6. KARDEGIC [Concomitant]
     Indication: PRODUCT USED FOR UNKNOWN INDICATION
     Route: 048
     Dates: start: 20100301
  7. KARDEGIC [Concomitant]
     Route: 065
  8. OROCAL [Concomitant]
     Indication: PRODUCT USED FOR UNKNOWN INDICATION
     Route: 048
     Dates: start: 20100301, end: 20100621
  9. RED BLOOD CELLS [Concomitant]
     Indication: ANAEMIA
     Route: 051
     Dates: start: 20100617, end: 20100617

REACTIONS (1)
  - PNEUMONIA [None]
